FAERS Safety Report 7548807-6 (Version None)
Quarter: 2011Q2

REPORT INFORMATION
  Report Type: 
  Country: None (occurrence: None)
  Receive Date: 20110615
  Receipt Date: 20110606
  Transmission Date: 20111010
  Serious: No
  Sender: FDA-Public Use
  Company Number: US-EISAI INC-E7389-01249-CLI-US

PATIENT
  Sex: Female
  Weight: 98 kg

DRUGS (8)
  1. METFORMIN HCL [Concomitant]
     Indication: TYPE 2 DIABETES MELLITUS
     Route: 048
     Dates: start: 19900101
  2. PERCOCET [Concomitant]
     Indication: PAIN
     Dosage: 7.5/325
     Route: 048
     Dates: start: 20100201
  3. EPIRUBICIN HYDROCHLORIDE [Suspect]
     Route: 041
     Dates: start: 20110425
  4. PROZAC [Concomitant]
     Indication: DEPRESSION
     Route: 048
     Dates: start: 20101201
  5. XANAX [Concomitant]
     Indication: ANXIETY
     Route: 048
     Dates: start: 20101201
  6. ZYPREXA [Concomitant]
     Indication: DEPRESSION
     Route: 048
     Dates: start: 20110201
  7. DURAGESIC-100 [Concomitant]
     Indication: PAIN
     Route: 062
     Dates: start: 20100201
  8. AMBIEN [Concomitant]
     Indication: INSOMNIA
     Route: 048
     Dates: start: 20100201

REACTIONS (1)
  - ELECTROCARDIOGRAM QT PROLONGED [None]
